FAERS Safety Report 9102761 (Version 1)
Quarter: 2013Q1

REPORT INFORMATION
  Report Type: Spontaneous
  Country: US (occurrence: US)
  Receive Date: 20130219
  Receipt Date: 20130219
  Transmission Date: 20140127
  Serious: Yes (Death, Other)
  Sender: FDA-Public Use
  Company Number: US-PFIZER INC-2013059836

PATIENT
  Age: 69 Year
  Sex: Male

DRUGS (6)
  1. SUTENT [Suspect]
     Indication: RENAL CANCER
     Dosage: 50 MG, UNK
     Dates: start: 20121205
  2. AMITRIPTYLINE HYDROCHLORIDE [Concomitant]
  3. FENOGLIDE [Concomitant]
  4. LEXAPRO [Concomitant]
  5. LIPITOR [Concomitant]
  6. XANAX [Concomitant]

REACTIONS (1)
  - Death [Fatal]
